FAERS Safety Report 6138654-4 (Version None)
Quarter: 2009Q1

REPORT INFORMATION
  Report Type: 
  Country: None (occurrence: None)
  Receive Date: 20090326
  Receipt Date: 20090323
  Transmission Date: 20090719
  Serious: Yes (Death)
  Sender: FDA-Public Use
  Company Number: CHPA2008GB22538

PATIENT
  Age: 11 Year
  Sex: Female

DRUGS (7)
  1. HYOSCINE HBR HYT [Suspect]
     Indication: SALIVARY HYPERSECRETION
     Dosage: 1.5 MG, Q72H, TRANSDERMAL; HALF A PATCH EVERY THREE DAYS, TRANSDERMAL
     Route: 062
     Dates: start: 20081120, end: 20081214
  2. HYOSCINE HBR HYT [Suspect]
     Indication: SALIVARY HYPERSECRETION
     Dosage: 1.5 MG, Q72H, TRANSDERMAL; HALF A PATCH EVERY THREE DAYS, TRANSDERMAL
     Route: 062
     Dates: start: 20081217, end: 20090126
  3. ONDANSETRON HCL [Concomitant]
  4. MANUKA [Concomitant]
  5. GINKGO BILOBA (GINKGO BILOBA) [Concomitant]
  6. MULTIVITAMIN AND MINERAL SUPPLEMENT (MINERALS NOS, VITAMINS NOS) [Concomitant]
  7. MOTILIUM [Concomitant]

REACTIONS (5)
  - ANTICHOLINERGIC SYNDROME [None]
  - DRY EYE [None]
  - INCREASED UPPER AIRWAY SECRETION [None]
  - RESPIRATORY FAILURE [None]
  - SKIN IRRITATION [None]
